FAERS Safety Report 6001396-X (Version None)
Quarter: 2008Q4

REPORT INFORMATION
  Report Type: 
  Country: None (occurrence: None)
  Receive Date: 20081215
  Receipt Date: 20081203
  Transmission Date: 20090506
  Serious: Yes (Congenital Anomaly)
  Sender: FDA-Public Use
  Company Number: TR-ELI_LILLY_AND_COMPANY-TR200812001754

PATIENT

DRUGS (10)
  1. ZYPREXA [Suspect]
     Indication: SCHIZOPHRENIA, PARANOID TYPE
     Dosage: 10 MG, DAILY (1/D)
     Route: 064
     Dates: start: 20071205
  2. ZYPREXA [Suspect]
     Dosage: 20 MG, DAILY (1/D)
     Route: 064
     Dates: end: 20080401
  3. ZYPREXA [Suspect]
     Dosage: 15 MG, DAILY (1/D)
     Route: 063
     Dates: start: 20080401
  4. PRENATAL VITAMINS                  /01549301/ [Concomitant]
     Route: 064
     Dates: end: 20080101
  5. IRON SULFATETHIAMIN COMPOUND TAB [Concomitant]
     Indication: ANAEMIA
     Route: 064
  6. FOLIC ACID [Concomitant]
     Indication: ANAEMIA
     Route: 064
  7. MAGNESIUM SULFATE [Concomitant]
     Indication: CONVULSION
     Route: 063
     Dates: start: 20080401, end: 20080401
  8. VENOFER [Concomitant]
     Route: 063
     Dates: start: 20080413
  9. SEFAZOL [Concomitant]
     Route: 063
     Dates: start: 20080413
  10. LIDOCAINE [Concomitant]
     Dosage: UNK, UNK
     Route: 063
     Dates: start: 20080101

REACTIONS (6)
  - CYANOSIS NEONATAL [None]
  - DRUG EXPOSURE DURING PREGNANCY [None]
  - DRUG EXPOSURE VIA BREAST MILK [None]
  - HEART RATE DECREASED [None]
  - HYPOTONIA NEONATAL [None]
  - TALIPES [None]
